FAERS Safety Report 6106641-8 (Version None)
Quarter: 2009Q1

REPORT INFORMATION
  Report Type: 
  Country: None (occurrence: None)
  Receive Date: 20090302
  Receipt Date: 20090225
  Transmission Date: 20090719
  Serious: Yes (Life-Threatening, Hospitalization)
  Sender: FDA-Public Use
  Company Number: GXKR2009DE02376

PATIENT
  Age: 82 Year
  Sex: Female

DRUGS (8)
  1. ACETYLSALICYLIC ACID (NGX)(ACETYLSALICYLIC ACID) TABLET, 100MG [Suspect]
     Indication: MYOCARDIAL INFARCTION
     Dosage: 100 MG, QD, ORAL
     Route: 048
     Dates: start: 20071101
  2. CLOPIDOGREL [Suspect]
     Indication: MYOCARDIAL INFARCTION
     Dosage: 75 MG, QD, ORAL
     Route: 048
     Dates: start: 20071101, end: 20080328
  3. FALITHROM (NGX) (PHENPROCOUMON) FILM-COATED TABLET [Suspect]
     Indication: ATRIAL FIBRILLATION
     Dosage: 1 DF, QD, ORAL
     Route: 048
     Dates: end: 20080328
  4. SIMVASTATIN [Suspect]
     Indication: HYPERLIPIDAEMIA
     Dosage: 20 MG, QD
     Dates: start: 20070101
  5. BISOPROLOL (BISOPROLOL) [Concomitant]
  6. PANTOPRAZOLE SODIUM [Concomitant]
  7. RAMIPRIL [Concomitant]
  8. TORSEMIDE [Concomitant]

REACTIONS (1)
  - GASTROINTESTINAL HAEMORRHAGE [None]
